FAERS Safety Report 21652461 (Version 1)
Quarter: 2022Q4

REPORT INFORMATION
  Report Type: Spontaneous
  Country: None (occurrence: US)
  Receive Date: 20221128
  Receipt Date: 20221128
  Transmission Date: 20230112
  Serious: No
  Sender: FDA-Public Use
  Company Number: US-P+L Developments of Newyork Corporation-2135307

PATIENT
  Age: 94 Year
  Sex: Female

DRUGS (2)
  1. DOCOSANOL [Suspect]
     Active Substance: DOCOSANOL
     Indication: Oral herpes
     Route: 065
     Dates: start: 20221101, end: 20221117
  2. DOCOSANOL [Suspect]
     Active Substance: DOCOSANOL
     Route: 065
     Dates: start: 20221101

REACTIONS (3)
  - Drug ineffective [Unknown]
  - Product use issue [Unknown]
  - Expired device used [Unknown]
